FAERS Safety Report 21918713 (Version 2)
Quarter: 2023Q1

REPORT INFORMATION
  Report Type: Spontaneous
  Country: US (occurrence: US)
  Receive Date: 20230127
  Receipt Date: 20230216
  Transmission Date: 20230417
  Serious: No
  Sender: FDA-Public Use
  Company Number: US-GSK-US2023AMR007960

PATIENT
  Sex: Female

DRUGS (1)
  1. ALBUTEROL SULFATE [Suspect]
     Active Substance: ALBUTEROL SULFATE
     Indication: Sinusitis
     Dosage: 2 PUFF(S), QID 2 PUMPS 4 TIMES A DAY

REACTIONS (9)
  - Cough [Unknown]
  - Rhinorrhoea [Unknown]
  - Dysphonia [Unknown]
  - Throat clearing [Unknown]
  - Dry throat [Unknown]
  - Secretion discharge [Unknown]
  - Drug effective for unapproved indication [Unknown]
  - Off label use [Unknown]
  - Product complaint [Unknown]
